FAERS Safety Report 8175004-6 (Version None)
Quarter: 2012Q1

REPORT INFORMATION
  Report Type: 
  Country: None (occurrence: None)
  Receive Date: 20120227
  Receipt Date: 20120215
  Transmission Date: 20120608
  Serious: Yes (Hospitalization)
  Sender: FDA-Public Use
  Company Number: 2012SP009141

PATIENT
  Age: 68 Year
  Sex: Male

DRUGS (5)
  1. BOCEPREVIR (SCH-503034) (200 MG) [Suspect]
     Indication: HEPATITIS C
     Dosage: 800 MG;TID;PO
     Route: 048
     Dates: start: 20111116, end: 20120208
  2. NORMITEN [Concomitant]
  3. RIBAVIRIN [Suspect]
     Indication: HEPATITIS C
     Dosage: BID;PO
     Route: 048
     Dates: start: 20111116, end: 20120208
  4. PEGINTERFERON ALFA-2B [Suspect]
     Indication: HEPATITIS C
     Dosage: 80 MCG;SC
     Route: 058
     Dates: start: 20111116, end: 20120208
  5. VASOPRIL [Concomitant]

REACTIONS (4)
  - DYSPHAGIA [None]
  - LARYNGITIS [None]
  - THROMBOCYTOPENIA [None]
  - ANAEMIA [None]
